FAERS Safety Report 11882856 (Version 1)
Quarter: 2015Q4

REPORT INFORMATION
  Report Type: Spontaneous
  Country: ES (occurrence: ES)
  Receive Date: 20151231
  Receipt Date: 20151231
  Transmission Date: 20160305
  Serious: Yes (Other)
  Sender: FDA-Public Use
  Company Number: ES-SA-2015SA219341

PATIENT
  Sex: Male

DRUGS (4)
  1. INSULIN DETEMIR [Suspect]
     Active Substance: INSULIN DETEMIR
     Route: 065
  2. LANTUS [Suspect]
     Active Substance: INSULIN GLARGINE
     Route: 065
  3. INSULIN [Concomitant]
     Active Substance: INSULIN NOS
  4. NOVOMIX [Concomitant]
     Active Substance: INSULIN ASPART

REACTIONS (3)
  - Dyspnoea [Unknown]
  - Bronchospasm [Unknown]
  - Eosinophilia [Unknown]
